FAERS Safety Report 15708742 (Version 1)
Quarter: 2018Q4

REPORT INFORMATION
  Report Type: Spontaneous
  Country: US (occurrence: US)
  Receive Date: 20181211
  Receipt Date: 20181211
  Transmission Date: 20190205
  Serious: Yes (Other)
  Sender: FDA-Public Use
  Company Number: None

PATIENT
  Age: 56 Year
  Sex: Male
  Weight: 90 kg

DRUGS (1)
  1. CYMBALTA [Suspect]
     Active Substance: DULOXETINE HYDROCHLORIDE
     Indication: NEURALGIA

REACTIONS (8)
  - Paraesthesia [None]
  - Nausea [None]
  - Dizziness [None]
  - Insomnia [None]
  - Night sweats [None]
  - Rash [None]
  - Impaired work ability [None]
  - Social problem [None]

NARRATIVE: CASE EVENT DATE: 20181101
